FAERS Safety Report 17338906 (Version 1)
Quarter: 2020Q1

REPORT INFORMATION
  Report Type: Spontaneous
  Country: FR (occurrence: FR)
  Receive Date: 20200129
  Receipt Date: 20200129
  Transmission Date: 20200409
  Serious: Yes (Hospitalization, Other)
  Sender: FDA-Public Use
  Company Number: FR-PFIZER INC-2020033729

PATIENT
  Age: 68 Year
  Sex: Male
  Weight: 69 kg

DRUGS (8)
  1. FOLINIC ACID [Suspect]
     Active Substance: LEUCOVORIN
     Indication: CHEMOTHERAPY TOXICITY ATTENUATION
     Dosage: 400 MG/M2, CYCLIC EVERY 2 WEEKS
     Route: 041
     Dates: start: 20191115, end: 20191115
  2. FLUOROURACILE ACCORD [Suspect]
     Active Substance: FLUOROURACIL
     Indication: ADENOCARCINOMA OF COLON
     Dosage: 2400 MG/M2, CYCLIC EVERY 2 WEEKS
     Route: 041
     Dates: start: 20191115, end: 20191116
  3. APROVEL [Concomitant]
     Active Substance: IRBESARTAN
     Route: 048
  4. OXALIPLATIN. [Suspect]
     Active Substance: OXALIPLATIN
     Indication: ADENOCARCINOMA OF COLON
     Dosage: 85 MG/M2, CYCLIC EVERY 2 WEEKS
     Route: 041
     Dates: start: 20191115, end: 20191115
  5. FRAGMINE [Concomitant]
     Active Substance: DALTEPARIN SODIUM
     Route: 058
  6. LIPANTHYL [Concomitant]
     Active Substance: FENOFIBRATE
     Route: 048
  7. ZYMAD [Concomitant]
     Active Substance: CHOLECALCIFEROL
     Route: 048
  8. BROMAZEPAM [Concomitant]
     Active Substance: BROMAZEPAM
     Route: 048

REACTIONS (2)
  - Acute kidney injury [Recovering/Resolving]
  - Diarrhoea [Recovered/Resolved]

NARRATIVE: CASE EVENT DATE: 20191117
